FAERS Safety Report 7921900-1 (Version None)
Quarter: 2011Q4

REPORT INFORMATION
  Report Type: 
  Country: None (occurrence: None)
  Receive Date: 20111117
  Receipt Date: 20111108
  Transmission Date: 20120403
  Serious: Yes (Other)
  Sender: FDA-Public Use
  Company Number: FR-BAXTER-2011BH035877

PATIENT
  Age: 68 Year
  Sex: Male

DRUGS (7)
  1. FEIBA [Suspect]
     Indication: HAEMATOMA
     Dosage: DOSE UNIT:UNITS PER KILOGRAM
     Route: 042
     Dates: start: 20111025, end: 20111101
  2. CORTICOSTEROID [Concomitant]
     Indication: ACQUIRED HAEMOPHILIA
     Route: 065
  3. FEIBA [Suspect]
     Dosage: DOSE UNIT:UNITS PER KILOGRAM
     Route: 042
     Dates: start: 20111101, end: 20111111
  4. RITUXIMAB [Suspect]
     Indication: ACQUIRED HAEMOPHILIA
     Route: 065
  5. RITUXIMAB [Suspect]
     Route: 065
     Dates: start: 20111110
  6. FEIBA [Suspect]
     Indication: ACQUIRED HAEMOPHILIA
     Dosage: DOSE UNIT:UNITS PER KILOGRAM
     Route: 042
     Dates: start: 20111025, end: 20111101
  7. FEIBA [Suspect]
     Dosage: DOSE UNIT:UNITS PER KILOGRAM
     Route: 042
     Dates: start: 20111101, end: 20111111

REACTIONS (1)
  - BLOOD FIBRINOGEN DECREASED [None]
